FAERS Safety Report 4684102-0 (Version None)
Quarter: 2005Q2

REPORT INFORMATION
  Report Type: 
  Country: None (occurrence: None)
  Receive Date: 20050527
  Receipt Date: 20041018
  Transmission Date: 20051028
  Serious: Yes (Other)
  Sender: FDA-Public Use
  Company Number: 14866

PATIENT
  Age: 80 Year
  Sex: Female
  Weight: 46.2669 kg

DRUGS (1)
  1. ACETYLCYSTEINE [Suspect]
     Indication: MUCOUS MEMBRANE DISORDER
     Dosage: VIA NEBULIZER
     Dates: start: 20041013

REACTIONS (1)
  - ASTHENIA [None]
